FAERS Safety Report 13741364 (Version 1)
Quarter: 2017Q3

REPORT INFORMATION
  Report Type: Spontaneous
  Country: US (occurrence: US)
  Receive Date: 20170711
  Receipt Date: 20170711
  Transmission Date: 20171127
  Serious: Yes (Other)
  Sender: FDA-Public Use
  Company Number: None

PATIENT
  Age: 55 Year
  Sex: Female
  Weight: 106.2 kg

DRUGS (2)
  1. VIBERZI [Suspect]
     Active Substance: ELUXADOLINE
     Indication: IRRITABLE BOWEL SYNDROME
     Dosage: ?          OTHER STRENGTH:MG;QUANTITY:1 TABLET(S);?
     Route: 048
     Dates: start: 20170710, end: 20170710
  2. VITAMIN [Concomitant]
     Active Substance: VITAMINS

REACTIONS (3)
  - Pancreatitis acute [None]
  - Contraindicated drug prescribed [None]
  - Contraindicated product administered [None]

NARRATIVE: CASE EVENT DATE: 20170710
